FAERS Safety Report 9086111 (Version 1)
Quarter: 2013Q1

REPORT INFORMATION
  Report Type: Spontaneous
  Country: US (occurrence: US)
  Receive Date: 20130201
  Receipt Date: 20130201
  Transmission Date: 20140127
  Serious: No
  Sender: FDA-Public Use
  Company Number: US-PFIZER INC-2013041356

PATIENT
  Age: 17 Year
  Sex: Female
  Weight: 52.15 kg

DRUGS (2)
  1. SERTRALINE HCL [Suspect]
     Indication: OBSESSIVE-COMPULSIVE DISORDER
     Dosage: 50 MG, 1X/DAY
     Route: 048
     Dates: start: 201210
  2. CLONAZEPAM [Suspect]
     Indication: IRRITABILITY
     Dosage: 0.125 MG, 1X/DAY
     Route: 048
     Dates: start: 201210, end: 20130130

REACTIONS (1)
  - Madarosis [Not Recovered/Not Resolved]
